FAERS Safety Report 6610578-5 (Version None)
Quarter: 2010Q1

REPORT INFORMATION
  Report Type: 
  Country: None (occurrence: None)
  Receive Date: 20100302
  Receipt Date: 20100219
  Transmission Date: 20100710
  Serious: Yes (Hospitalization)
  Sender: FDA-Public Use
  Company Number: FR-PFIZER INC-2010021914

PATIENT
  Age: 12 Year
  Sex: Female

DRUGS (1)
  1. SOLU-MEDROL [Suspect]
     Dosage: 15 MG/KG
     Route: 040
     Dates: start: 20091204, end: 20091204

REACTIONS (1)
  - RASH ERYTHEMATOUS [None]
